FAERS Safety Report 8400924-4 (Version None)
Quarter: 2012Q2

REPORT INFORMATION
  Report Type: 
  Country: None (occurrence: None)
  Receive Date: 20120601
  Receipt Date: 20120521
  Transmission Date: 20120825
  Serious: Yes (Disabling, Congenital Anomaly)
  Sender: FDA-Public Use
  Company Number: FR-ALVOGEN-2012AL000048

PATIENT
  Age: 1 Day
  Sex: Female

DRUGS (2)
  1. AUGMENTIN '125' [Suspect]
     Indication: PRODUCT USED FOR UNKNOWN INDICATION
  2. FURADANTIN [Suspect]
     Indication: PRODUCT USED FOR UNKNOWN INDICATION
     Route: 064
     Dates: start: 20110101

REACTIONS (3)
  - CRANIOSYNOSTOSIS [None]
  - SCAPHOCEPHALY [None]
  - FOETAL EXPOSURE DURING PREGNANCY [None]
